FAERS Safety Report 4722982-0 (Version None)
Quarter: 2005Q3

REPORT INFORMATION
  Report Type: 
  Country: None (occurrence: None)
  Receive Date: 20050719
  Receipt Date: 20040908
  Transmission Date: 20060218
  Serious: Yes (Other)
  Sender: FDA-Public Use
  Company Number: 2003170441US

PATIENT
  Age: 72 Year
  Sex: Female
  Weight: 63.5 kg

DRUGS (8)
  1. CELEBREX [Suspect]
     Indication: RHEUMATOID ARTHRITIS
     Dosage: 200 MG, QD, ORAL
     Route: 048
     Dates: start: 20030301, end: 20030723
  2. CELEBREX [Suspect]
     Indication: RHEUMATOID ARTHRITIS
     Dosage: 200 MG, QD, ORAL
     Route: 048
     Dates: start: 20030801
  3. ECOTRIN(ACETYLSALICYLIC ACID) [Suspect]
     Dosage: ORAL
     Route: 048
  4. TYLENOL [Concomitant]
  5. EFFEXOR [Concomitant]
  6. PEPCID [Concomitant]
  7. CALCIUM GLUCONATE [Concomitant]
  8. QUININE SULFATE [Concomitant]

REACTIONS (2)
  - CEREBROVASCULAR ACCIDENT [None]
  - PRURITUS [None]
